FAERS Safety Report 4583334-X (Version None)
Quarter: 2005Q1

REPORT INFORMATION
  Report Type: 
  Country: None (occurrence: None)
  Receive Date: 20050125
  Receipt Date: 20041105
  Transmission Date: 20050727
  Serious: No
  Sender: FDA-Public Use
  Company Number: USA040157096

PATIENT
  Age: 86 Year
  Sex: Female

DRUGS (1)
  1. FORTEO [Suspect]
     Indication: OSTEOPOROSIS
     Dates: start: 20030901

REACTIONS (8)
  - ALOPECIA [None]
  - ARTHRITIS [None]
  - INJECTION SITE HAEMORRHAGE [None]
  - IRRITABILITY [None]
  - MUSCLE SPASMS [None]
  - PRURITUS [None]
  - RASH PRURITIC [None]
  - VISUAL ACUITY REDUCED [None]
